FAERS Safety Report 17677320 (Version 1)
Quarter: 2020Q2

REPORT INFORMATION
  Report Type: Report from Study
  Country: FR (occurrence: FR)
  Receive Date: 20200416
  Receipt Date: 20200416
  Transmission Date: 20200714
  Serious: Yes (Other)
  Sender: FDA-Public Use
  Company Number: FR-GILEAD-2020-0459268

PATIENT

DRUGS (5)
  1. ATAZANAVIR + RITONAVIR [Concomitant]
     Active Substance: ATAZANAVIR\RITONAVIR
  2. ABACAVIR. [Concomitant]
     Active Substance: ABACAVIR
  3. ITRACONAZOLE. [Concomitant]
     Active Substance: ITRACONAZOLE
  4. TENOFOVIR DISOPROXIL FUMARATE. [Suspect]
     Active Substance: TENOFOVIR DISOPROXIL FUMARATE
     Indication: HIV INFECTION
     Route: 065
  5. AMBISOME [Concomitant]
     Active Substance: AMPHOTERICIN B

REACTIONS (3)
  - Immune reconstitution inflammatory syndrome [Unknown]
  - Colitis [Unknown]
  - Cardiac arrest [Unknown]
